FAERS Safety Report 9155557 (Version 2)
Quarter: 2013Q2

REPORT INFORMATION
  Report Type: Spontaneous
  Country: US (occurrence: US)
  Receive Date: 20130311
  Receipt Date: 20130401
  Transmission Date: 20140414
  Serious: Yes (Death)
  Sender: FDA-Public Use
  Company Number: US-GLAXOSMITHKLINE-A1015280A

PATIENT
  Age: 78 Year
  Sex: Female

DRUGS (4)
  1. PROMACTA [Suspect]
     Indication: IDIOPATHIC THROMBOCYTOPENIC PURPURA
     Dosage: 50MG PER DAY
     Route: 048
     Dates: start: 20120214
  2. PRADAXA [Suspect]
     Indication: ATRIAL FIBRILLATION
     Route: 065
  3. LEVAQUIN [Concomitant]
  4. ZITHROMAX [Concomitant]

REACTIONS (3)
  - Death [Fatal]
  - Haemorrhage intracranial [Unknown]
  - Oesophageal carcinoma [Unknown]
